FAERS Safety Report 19578140 (Version 6)
Quarter: 2023Q1

REPORT INFORMATION
  Report Type: Spontaneous
  Country: US (occurrence: US)
  Receive Date: 20210719
  Receipt Date: 20230217
  Transmission Date: 20230417
  Serious: No
  Sender: FDA-Public Use
  Company Number: US-PFIZER INC-2019431800

PATIENT
  Age: 65 Year
  Sex: Female
  Weight: 95.4 kg

DRUGS (6)
  1. PREMARIN [Suspect]
     Active Substance: ESTROGENS, CONJUGATED
     Dosage: 0.5 MG (INSERT 0.5 MG VAGINALLY AT NIGHT ON MONDAY AND THURSDAY)
     Route: 067
     Dates: start: 20200922
  2. PREMARIN [Suspect]
     Active Substance: ESTROGENS, CONJUGATED
     Dosage: APPLY NIGHTLY TO VAGINA FOR 1 WEEK, THEN MONDAY/WEDNESDAY/FRIDAY
     Route: 067
     Dates: start: 20201006
  3. PREMARIN [Suspect]
     Active Substance: ESTROGENS, CONJUGATED
     Dosage: UNK(APPLY NIGHTLY TO VAGINA M/W/F)
     Route: 067
     Dates: start: 20210623
  4. PREMARIN [Suspect]
     Active Substance: ESTROGENS, CONJUGATED
     Dosage: UNK(APPLY NIGHTLY TO VAGINA M/W/F)
     Route: 067
     Dates: start: 20210706
  5. PREMARIN [Suspect]
     Active Substance: ESTROGENS, CONJUGATED
     Dosage: UNK UNK, ALTERNATE DAY (APPLY NIGHTLY TO VAGINA M/W/F)
     Route: 067
     Dates: start: 20211027
  6. PREMARIN [Suspect]
     Active Substance: ESTROGENS, CONJUGATED
     Dosage: UNK (APPLY PEA SIZED AMOUNT NIGHTLY TO VAGINA M/W/F)
     Route: 067

REACTIONS (4)
  - Weight decreased [Unknown]
  - Off label use [Unknown]
  - Product use issue [Unknown]
  - Product prescribing error [Unknown]

NARRATIVE: CASE EVENT DATE: 20201006
